FAERS Safety Report 7909145-2 (Version None)
Quarter: 2011Q4

REPORT INFORMATION
  Report Type: 
  Country: None (occurrence: None)
  Receive Date: 20111111
  Receipt Date: 20101214
  Transmission Date: 20120403
  Serious: No
  Sender: FDA-Public Use
  Company Number: US-GLAXOSMITHKLINE-A0899728A

PATIENT
  Age: 75 Year
  Sex: Female

DRUGS (4)
  1. KLOR-CON [Concomitant]
  2. COREG [Suspect]
     Indication: CARDIAC DISORDER
     Dosage: 25MG TWICE PER DAY
     Route: 048
     Dates: start: 20100319
  3. GLYBURIDE AND METFORMIN HYDROCHLORIDE [Concomitant]
  4. LISINOPRIL [Concomitant]

REACTIONS (1)
  - NAUSEA [None]
